FAERS Safety Report 9068183 (Version 1)
Quarter: 2013Q1

REPORT INFORMATION
  Report Type: Spontaneous
  Country: US (occurrence: US)
  Receive Date: 20130215
  Receipt Date: 20130215
  Transmission Date: 20140127
  Serious: No
  Sender: FDA-Public Use
  Company Number: US-BIOGENIDEC-2013BI012462

PATIENT
  Sex: Female

DRUGS (1)
  1. AVONEX [Suspect]
     Indication: MULTIPLE SCLEROSIS
     Route: 030

REACTIONS (6)
  - Catatonia [Recovered/Resolved]
  - Secondary progressive multiple sclerosis [Not Recovered/Not Resolved]
  - Aphasia [Recovered/Resolved]
  - Abnormal behaviour [Recovered/Resolved]
  - Asthenia [Recovered/Resolved]
  - Influenza like illness [Not Recovered/Not Resolved]
